FAERS Safety Report 5668421-7 (Version None)
Quarter: 2008Q1

REPORT INFORMATION
  Report Type: 
  Country: None (occurrence: None)
  Receive Date: 20080312
  Receipt Date: 20080303
  Transmission Date: 20080703
  Serious: Yes (Death, Life-Threatening, Hospitalization)
  Sender: FDA-Public Use
  Company Number: 163-C5013-08020987

PATIENT
  Age: 73 Year
  Sex: Female
  Weight: 87.9978 kg

DRUGS (3)
  1. CC-5013 (LENALIDOMIDE) (25 MILLIGRAM, CAPSULES) [Suspect]
     Indication: B-CELL LYMPHOMA
     Dosage: 25 MG, QD X21 DAYS OUT OF 28 DAYS, ORAL
     Route: 048
     Dates: start: 20080205, end: 20080217
  2. DEXAMETHASONE TAB [Suspect]
     Indication: B-CELL LYMPHOMA
     Dosage: 40 MG, ORAL; 40 MG, ORAL
     Route: 048
     Dates: start: 20080205, end: 20080205
  3. DEXAMETHASONE TAB [Suspect]
     Indication: B-CELL LYMPHOMA
     Dosage: 40 MG, ORAL; 40 MG, ORAL
     Route: 048
     Dates: start: 20080213, end: 20080213

REACTIONS (3)
  - BACTERIAL INFECTION [None]
  - BLOOD CULTURE POSITIVE [None]
  - GASTROINTESTINAL PERFORATION [None]
